FAERS Safety Report 24017373 (Version 1)
Quarter: 2024Q2

REPORT INFORMATION
  Report Type: Spontaneous
  Country: US (occurrence: US)
  Receive Date: 20240627
  Receipt Date: 20240627
  Transmission Date: 20240716
  Serious: No
  Sender: FDA-Public Use
  Company Number: US-TAKEDA-2024TUS063824

PATIENT
  Sex: Female
  Weight: 77 kg

DRUGS (2)
  1. VYVANSE [Suspect]
     Active Substance: LISDEXAMFETAMINE DIMESYLATE
     Indication: Attention deficit hyperactivity disorder
     Dosage: 60 MILLIGRAM, QD
     Route: 065
     Dates: start: 2019
  2. NP THYROID [Concomitant]
     Active Substance: LEVOTHYROXINE\LIOTHYRONINE
     Indication: Thyroid hormone replacement therapy
     Dosage: UNK
     Route: 065

REACTIONS (2)
  - Product dispensing error [Unknown]
  - No adverse event [Unknown]
